FAERS Safety Report 10252513 (Version 1)
Quarter: 2014Q2

REPORT INFORMATION
  Report Type: Spontaneous
  Country: US (occurrence: None)
  Receive Date: 20140619
  Receipt Date: 20140619
  Transmission Date: 20141212
  Serious: Yes (Other)
  Sender: FDA-Public Use
  Company Number: KAD201406-000623

PATIENT
  Age: 70 Year
  Sex: Male

DRUGS (1)
  1. ANASTROZOLE (ANASTROZOLE) [Suspect]
     Indication: BREAST CANCER

REACTIONS (2)
  - Breast cancer recurrent [None]
  - Metastases to lymph nodes [None]
